FAERS Safety Report 9701841 (Version 1)
Quarter: 2013Q4

REPORT INFORMATION
  Report Type: Spontaneous
  Country: US (occurrence: US)
  Receive Date: 20131121
  Receipt Date: 20131121
  Transmission Date: 20140711
  Serious: No
  Sender: FDA-Public Use
  Company Number: US-PFIZER INC-2013331337

PATIENT
  Age: 60 Year
  Sex: Female

DRUGS (10)
  1. XELJANZ [Suspect]
     Indication: RHEUMATOID ARTHRITIS
     Dosage: 5 MG, 2X/DAY
     Route: 048
     Dates: start: 201308
  2. LASIX [Concomitant]
     Dosage: 40 MG, UNK
  3. ATENOLOL [Concomitant]
     Dosage: 50 MG, UNK
  4. POTASSIUM CHLORIDE [Concomitant]
     Dosage: 20 MEQ, UNK
  5. VITAMIN D [Concomitant]
     Dosage: 2000
  6. VITAMIN B-12 [Concomitant]
     Dosage: 1000 UG, UNK
  7. FISH OIL [Concomitant]
     Dosage: 1000
  8. VICODIN [Concomitant]
     Dosage: 5-500
  9. MIACALCIN [Concomitant]
     Dosage: 200 IU, UNK
  10. VERAPAMIL [Concomitant]
     Dosage: 240 MG, UNK

REACTIONS (1)
  - Bronchitis [Recovering/Resolving]
